FAERS Safety Report 19429845 (Version 4)
Quarter: 2024Q2

REPORT INFORMATION
  Report Type: Spontaneous
  Country: US (occurrence: US)
  Receive Date: 20210617
  Receipt Date: 20240429
  Transmission Date: 20240716
  Serious: Yes (Other)
  Sender: FDA-Public Use
  Company Number: US-PFIZER INC-2020457449

PATIENT
  Age: 65 Year
  Sex: Female

DRUGS (2)
  1. IBRANCE [Suspect]
     Active Substance: PALBOCICLIB
     Dosage: 125 MG
     Dates: start: 20201016
  2. IBRANCE [Suspect]
     Active Substance: PALBOCICLIB
     Dosage: 100 MG

REACTIONS (13)
  - Cerebrovascular accident [Recovered/Resolved]
  - Blood calcium increased [Recovered/Resolved]
  - Fatigue [Recovered/Resolved]
  - Dizziness [Recovered/Resolved]
  - Balance disorder [Recovered/Resolved]
  - Neoplasm progression [Unknown]
  - Tremor [Unknown]
  - Feeling cold [Unknown]
  - Back disorder [Unknown]
  - Hypertension [Recovered/Resolved]
  - Speech disorder [Unknown]
  - Confusional state [Unknown]
  - Product dose omission issue [Unknown]
